FAERS Safety Report 9477867 (Version 1)
Quarter: 2013Q3

REPORT INFORMATION
  Report Type: Spontaneous
  Country: US (occurrence: None)
  Receive Date: 20130826
  Receipt Date: 20130826
  Transmission Date: 20140515
  Serious: Yes (Other)
  Sender: FDA-Public Use
  Company Number: None

PATIENT
  Age: 41 Year
  Sex: Female
  Weight: 56.8 kg

DRUGS (2)
  1. PREVIFEM [Suspect]
     Indication: DYSMENORRHOEA
     Route: 048
     Dates: start: 20130701, end: 20130801
  2. PREVIFEM [Suspect]
     Indication: ACNE
     Route: 048
     Dates: start: 20130701, end: 20130801

REACTIONS (4)
  - Palpitations [None]
  - Presyncope [None]
  - Weight decreased [None]
  - Product substitution issue [None]
